FAERS Safety Report 4980802-3 (Version None)
Quarter: 2006Q2

REPORT INFORMATION
  Report Type: 
  Country: None (occurrence: None)
  Receive Date: 20060424
  Receipt Date: 20051221
  Transmission Date: 20061013
  Serious: Yes (Hospitalization, Disabling)
  Sender: FDA-Public Use
  Company Number: US-MERCK-0512USA03426

PATIENT
  Age: 58 Year
  Sex: Male
  Weight: 125 kg

DRUGS (12)
  1. VIOXX [Suspect]
     Indication: ARTHRALGIA
     Route: 048
     Dates: start: 19990101, end: 20031201
  2. VIOXX [Suspect]
     Indication: ARTHRITIS
     Route: 048
     Dates: start: 19990101, end: 20031201
  3. LASIX [Concomitant]
     Indication: OEDEMA PERIPHERAL
     Route: 065
  4. LASIX [Concomitant]
     Indication: HYPERTENSION
     Route: 065
  5. POTASSIUM (UNSPECIFIED) [Concomitant]
     Route: 065
  6. ULTRACET [Concomitant]
     Indication: ARTHRALGIA
     Route: 048
  7. PRILOSEC [Concomitant]
     Indication: GASTROOESOPHAGEAL REFLUX DISEASE
     Route: 048
  8. PRILOSEC [Concomitant]
     Route: 048
  9. TOPROL-XL [Concomitant]
     Route: 048
  10. TYLENOL (CAPLET) [Concomitant]
     Indication: ARTHRALGIA
     Route: 065
     Dates: start: 20021201
  11. TRAMADOLOR [Concomitant]
     Indication: ARTHRALGIA
     Route: 065
     Dates: start: 20021201
  12. ADVIL [Concomitant]
     Indication: ARTHRALGIA
     Route: 065

REACTIONS (7)
  - CARDIAC DISORDER [None]
  - CATARACT [None]
  - CHEST PAIN [None]
  - CORONARY ARTERY DISEASE [None]
  - CORONARY ARTERY OCCLUSION [None]
  - JOINT INJURY [None]
  - MYOCARDIAL INFARCTION [None]
